FAERS Safety Report 14480593 (Version 1)
Quarter: 2018Q1

REPORT INFORMATION
  Report Type: Spontaneous
  Country: US (occurrence: US)
  Receive Date: 20180201
  Receipt Date: 20180201
  Transmission Date: 20180509
  Serious: Yes (Disabling)
  Sender: FDA-Public Use
  Company Number: None

PATIENT
  Age: 75 Year
  Sex: Male
  Weight: 81.45 kg

DRUGS (4)
  1. MULTIPLE VITAMIN [Concomitant]
     Active Substance: VITAMINS
  2. ELIQUIS [Concomitant]
     Active Substance: APIXABAN
  3. LOSARTAN POTASSIUM. [Concomitant]
     Active Substance: LOSARTAN POTASSIUM
  4. ELIQUIS [Suspect]
     Active Substance: APIXABAN
     Indication: THROMBOSIS PROPHYLAXIS
     Route: 048
     Dates: start: 20171116

REACTIONS (2)
  - Lethargy [None]
  - Depressed level of consciousness [None]

NARRATIVE: CASE EVENT DATE: 20171222
